FAERS Safety Report 9486805 (Version 1)
Quarter: 2013Q3

REPORT INFORMATION
  Report Type: Spontaneous
  Country: US (occurrence: US)
  Receive Date: 20130829
  Receipt Date: 20130829
  Transmission Date: 20140515
  Serious: Yes (Other)
  Sender: FDA-Public Use
  Company Number: US-PURDUE-USA-2013-0105840

PATIENT
  Sex: Female

DRUGS (2)
  1. OXYCONTIN TABLETS [Suspect]
     Indication: PAIN
     Dosage: 80 MG (3 TABS QAM, 2 TABS QPM)
     Route: 048
  2. OXYCONTIN TABLETS [Suspect]
     Dosage: 80  (2 TABS QAM, 1 TAB LUNCH,2 TABS QPM)

REACTIONS (5)
  - Intervertebral disc protrusion [Unknown]
  - Patient-device incompatibility [Unknown]
  - Procedural site reaction [Unknown]
  - Muscle spasms [Not Recovered/Not Resolved]
  - Headache [Not Recovered/Not Resolved]
